FAERS Safety Report 8514268-3 (Version None)
Quarter: 2012Q3

REPORT INFORMATION
  Report Type: 
  Country: None (occurrence: None)
  Receive Date: 20120717
  Receipt Date: 20120710
  Transmission Date: 20120928
  Serious: Yes (Hospitalization)
  Sender: FDA-Public Use
  Company Number: FR-PFIZER INC-2012164966

PATIENT
  Age: 49 Year
  Sex: Female

DRUGS (4)
  1. PREDNISONE TAB [Concomitant]
     Indication: INFLAMMATORY BOWEL DISEASE
     Dosage: 15 MG, 1X/DAY
     Route: 048
     Dates: start: 20120408, end: 20120610
  2. IMURAN [Suspect]
     Indication: INFLAMMATORY BOWEL DISEASE
     Dosage: 200 MG, 1X/DAY
     Route: 048
     Dates: start: 20120401
  3. FLUCONAZOLE [Suspect]
     Indication: FUNGAL INFECTION
     Dosage: 100 MG, 1X/DAY
     Route: 048
     Dates: start: 20120510, end: 20120517
  4. FERROUS SULFATE TAB [Concomitant]
     Indication: INFLAMMATORY BOWEL DISEASE
     Dosage: 1 DF, 1X/DAY
     Route: 048
     Dates: start: 20120328

REACTIONS (3)
  - LYMPHOPENIA [None]
  - NEUTROPENIA [None]
  - ANAEMIA [None]
